FAERS Safety Report 15808691 (Version 2)
Quarter: 2019Q1

REPORT INFORMATION
  Report Type: Spontaneous
  Country: PL (occurrence: PL)
  Receive Date: 20190110
  Receipt Date: 20190311
  Transmission Date: 20190417
  Serious: Yes (Hospitalization, Other)
  Sender: FDA-Public Use
  Company Number: PHHY2019PL001498

PATIENT
  Age: 48 Year
  Sex: Male

DRUGS (1)
  1. INTERFERON BETA-1B [Suspect]
     Active Substance: INTERFERON BETA-1B
     Indication: MULTIPLE SCLEROSIS
     Dosage: UNK
     Route: 058

REACTIONS (7)
  - Optic neuritis [Unknown]
  - Blindness unilateral [Unknown]
  - Depressed mood [Unknown]
  - Vision blurred [Recovering/Resolving]
  - Amblyopia [Unknown]
  - Visual impairment [Not Recovered/Not Resolved]
  - Multiple sclerosis relapse [Unknown]
